FAERS Safety Report 7936183-6 (Version None)
Quarter: 2011Q4

REPORT INFORMATION
  Report Type: 
  Country: None (occurrence: None)
  Receive Date: 20111121
  Receipt Date: 20111108
  Transmission Date: 20120403
  Serious: Yes (Other)
  Sender: FDA-Public Use
  Company Number: 2010MA002624

PATIENT
  Age: 65 Year
  Sex: Female
  Weight: 81.6475 kg

DRUGS (22)
  1. METOCLOPRAMIDE [Suspect]
     Indication: GASTROOESOPHAGEAL REFLUX DISEASE
     Dosage: 10 MG; QID PRN; PO
     Route: 048
     Dates: start: 19970101, end: 20050301
  2. LEVAQUIN [Concomitant]
  3. VITAMIN B-12 [Concomitant]
  4. LEVOTHYROXINE SODIUM [Concomitant]
  5. ATENOLOL [Concomitant]
  6. PREMARIN [Concomitant]
  7. HYDROCODONE BITARTRATE AND ACETAMINOPHEN [Concomitant]
  8. NEXIUM [Concomitant]
  9. AVANDAMET [Concomitant]
  10. LISINOPRIL [Concomitant]
  11. GLYBURIDE [Concomitant]
  12. PREVACID [Concomitant]
  13. ARANESP [Concomitant]
  14. TETRABENAZINE [Concomitant]
  15. METFORMIN HCL [Concomitant]
  16. ACCUPRIL [Concomitant]
  17. ZYRTEC [Concomitant]
  18. IBUPROFEN [Concomitant]
  19. LIPITOR [Concomitant]
  20. NEURONTIN [Concomitant]
  21. FERROUS GLUCONATE [Concomitant]
  22. ACIPHEX [Concomitant]

REACTIONS (17)
  - WEIGHT DECREASED [None]
  - VIITH NERVE PARALYSIS [None]
  - FACIAL PARESIS [None]
  - PAIN [None]
  - PROTEINURIA [None]
  - RED BLOOD CELL SEDIMENTATION RATE INCREASED [None]
  - PAIN IN JAW [None]
  - CARPAL TUNNEL SYNDROME [None]
  - TARDIVE DYSKINESIA [None]
  - MUSCLE TWITCHING [None]
  - BRUXISM [None]
  - ANAEMIA VITAMIN B12 DEFICIENCY [None]
  - EXTRAPYRAMIDAL DISORDER [None]
  - ECONOMIC PROBLEM [None]
  - EMOTIONAL DISORDER [None]
  - HAEMOGLOBIN DECREASED [None]
  - ANXIETY [None]
